FAERS Safety Report 4471390-9 (Version None)
Quarter: 2004Q4

REPORT INFORMATION
  Report Type: 
  Country: None (occurrence: None)
  Receive Date: 20041012
  Receipt Date: 20040728
  Transmission Date: 20050328
  Serious: Yes (Hospitalization)
  Sender: FDA-Public Use
  Company Number: DE-BRISTOL-MYERS SQUIBB COMPANY-12653572

PATIENT
  Age: 57 Year
  Sex: Female
  Weight: 47 kg

DRUGS (2)
  1. TAXOL [Suspect]
     Indication: BREAST CANCER METASTATIC
     Dosage: THERAPY DATES: 01 AND 22-JUL-2004
     Route: 042
     Dates: start: 20040722, end: 20040722
  2. XELODA [Suspect]
     Indication: BREAST CANCER METASTATIC
     Dosage: THERAPY DATES: 01 AND 22-JUL-2004
     Route: 048
     Dates: start: 20040722, end: 20040722

REACTIONS (6)
  - ANOREXIA [None]
  - CARDIOVASCULAR DISORDER [None]
  - GENERAL PHYSICAL HEALTH DETERIORATION [None]
  - HYPOTENSION [None]
  - NAUSEA [None]
  - VOMITING [None]
